FAERS Safety Report 11340399 (Version 1)
Quarter: 2015Q3

REPORT INFORMATION
  Report Type: Spontaneous
  Country: US (occurrence: None)
  Receive Date: 20150803
  Receipt Date: 20150803
  Transmission Date: 20151125
  Serious: No
  Sender: FDA-Public Use
  Company Number: None

PATIENT
  Sex: Female

DRUGS (2)
  1. TASIGNA [Suspect]
     Active Substance: NILOTINIB
     Indication: METASTATIC NEOPLASM
     Route: 048
     Dates: start: 20140324
  2. LYRICA [Concomitant]
     Active Substance: PREGABALIN

REACTIONS (2)
  - Memory impairment [None]
  - Drug dose omission [None]
